FAERS Safety Report 24702253 (Version 1)
Quarter: 2024Q4

REPORT INFORMATION
  Report Type: Spontaneous
  Country: US (occurrence: None)
  Receive Date: 20241204
  Receipt Date: 20241204
  Transmission Date: 20250114
  Serious: Yes (Other)
  Sender: Public
  Company Number: None

PATIENT
  Age: 42 Year
  Sex: Female
  Weight: 101.25 kg

DRUGS (3)
  1. MONTELUKAST [Suspect]
     Active Substance: MONTELUKAST
     Indication: Asthma
  2. Budesonide fomoterol inhaler [Concomitant]
  3. ZYRTEC [Concomitant]
     Active Substance: CETIRIZINE HYDROCHLORIDE

REACTIONS (7)
  - Sleep disorder [None]
  - Memory impairment [None]
  - Anxiety [None]
  - Exposure to fungus [None]
  - Depression [None]
  - Fear of disease [None]
  - Feeling abnormal [None]

NARRATIVE: CASE EVENT DATE: 20190801
